FAERS Safety Report 8313827-0 (Version None)
Quarter: 2012Q2

REPORT INFORMATION
  Report Type: 
  Country: None (occurrence: None)
  Receive Date: 20120426
  Receipt Date: 20120417
  Transmission Date: 20120825
  Serious: Yes (Other)
  Sender: FDA-Public Use
  Company Number: CA-JNJFOC-20120407999

PATIENT
  Sex: Male
  Weight: 91.8 kg

DRUGS (7)
  1. REMICADE [Suspect]
     Dosage: 13TH INFUSION
     Route: 042
     Dates: start: 20120417
  2. TYLENOL (CAPLET) [Concomitant]
     Indication: PREMEDICATION
     Route: 048
  3. TYLENOL W/ CODEINE NO. 4 [Concomitant]
     Route: 065
  4. BENADRYL [Concomitant]
     Indication: PREMEDICATION
     Route: 042
  5. REMICADE [Suspect]
     Indication: CROHN'S DISEASE
     Route: 042
     Dates: start: 20091110
  6. SOLU-CORTEF [Concomitant]
     Indication: PREMEDICATION
     Route: 042
  7. IMURAN [Concomitant]
     Route: 065

REACTIONS (1)
  - SCIATICA [None]
